FAERS Safety Report 13901762 (Version 1)
Quarter: 2017Q3

REPORT INFORMATION
  Report Type: Report from Study
  Country: US (occurrence: US)
  Receive Date: 20170824
  Receipt Date: 20170824
  Transmission Date: 20171127
  Serious: Yes (Hospitalization)
  Sender: FDA-Public Use
  Company Number: US-SWEDISH ORPHAN INTERNATIONAL AB-2015US0690

PATIENT
  Age: 34 Year
  Sex: Female
  Weight: 134.38 kg

DRUGS (10)
  1. KINERET [Suspect]
     Active Substance: ANAKINRA
     Indication: MULTICENTRIC RETICULOHISTIOCYTOSIS
     Route: 058
     Dates: start: 20150912, end: 20150926
  2. VITAMIN D [Concomitant]
     Active Substance: CHOLECALCIFEROL
     Dosage: 50,000 UNIT CAPSULES, 1 CAPSULE WEEKLY
     Route: 048
  3. PREDNISONE. [Concomitant]
     Active Substance: PREDNISONE
     Dosage: 2 TABLETS, TWICE DAILY
     Route: 048
  4. OXYCODONE [Concomitant]
     Active Substance: OXYCODONE
     Dosage: ONE TABLET TWICE DAILY AS NEEDED
     Route: 048
  5. KINERET [Suspect]
     Active Substance: ANAKINRA
     Route: 058
     Dates: start: 20151110, end: 20151111
  6. KINERET [Suspect]
     Active Substance: ANAKINRA
     Dosage: WEEKLY
     Route: 058
     Dates: start: 20161129
  7. VITAMIN B12 [Concomitant]
     Active Substance: CYANOCOBALAMIN
  8. TRAZODONE [Concomitant]
     Active Substance: TRAZODONE HYDROCHLORIDE
     Route: 048
  9. NORCO [Concomitant]
     Active Substance: ACETAMINOPHEN\HYDROCODONE BITARTRATE
  10. CYANOCOBALAMIN. [Concomitant]
     Active Substance: CYANOCOBALAMIN
     Dosage: 1000 MCG/ML SOLUTION, INJECT 1 CC ONCE WEEKLY
     Route: 058

REACTIONS (8)
  - Injection site warmth [Recovered/Resolved]
  - Injection site rash [Recovered/Resolved]
  - Injection site pain [Recovered/Resolved]
  - Application site exfoliation [Recovered/Resolved]
  - Injection site swelling [Recovered/Resolved]
  - Injection site erythema [Recovered/Resolved]
  - Non-neutralising antibodies positive [Unknown]
  - Off label use [Unknown]

NARRATIVE: CASE EVENT DATE: 20150924
